FAERS Safety Report 19913847 (Version 1)
Quarter: 2021Q4

REPORT INFORMATION
  Report Type: Report from Study
  Country: DE (occurrence: DE)
  Receive Date: 20211004
  Receipt Date: 20211004
  Transmission Date: 20220303
  Serious: Yes (Hospitalization, Other)
  Sender: FDA-Public Use
  Company Number: DE-NOVPHSZ-PHHY2018DE073242

PATIENT
  Age: 90 Year
  Sex: Female
  Weight: 48 kg

DRUGS (24)
  1. DOXORUBICIN [Suspect]
     Active Substance: DOXORUBICIN
     Indication: Diffuse large B-cell lymphoma
     Dosage: 36.3 MG, (INFUSION TIME 09:30-10:30)
     Route: 041
     Dates: start: 20180405, end: 20180405
  2. DOXORUBICIN [Suspect]
     Active Substance: DOXORUBICIN
     Dosage: 36.3 MG, UNK
     Route: 041
     Dates: start: 20180517, end: 20180517
  3. DOXORUBICIN [Suspect]
     Active Substance: DOXORUBICIN
     Dosage: 36.3 MG, UNK
     Route: 041
     Dates: start: 20180315, end: 20180315
  4. DOXORUBICIN [Suspect]
     Active Substance: DOXORUBICIN
     Dosage: 36.3 MG, UNK
     Route: 041
     Dates: start: 20180426, end: 20180426
  5. VINCRISTINE [Suspect]
     Active Substance: VINCRISTINE
     Indication: Diffuse large B-cell lymphoma
     Dosage: 1 MG, UNK
     Route: 041
     Dates: start: 20180315, end: 20180315
  6. VINCRISTINE [Suspect]
     Active Substance: VINCRISTINE
     Dosage: 1 MG, UNK
     Route: 041
     Dates: start: 20180517, end: 20180517
  7. VINCRISTINE [Suspect]
     Active Substance: VINCRISTINE
     Dosage: 1 MG, (INFUSION RATE:09:00-09:10)
     Route: 041
     Dates: start: 20180405, end: 20180405
  8. VINCRISTINE [Suspect]
     Active Substance: VINCRISTINE
     Dosage: 1 MG, UNK
     Route: 041
     Dates: start: 20180426, end: 20180426
  9. CYCLOPHOSPHAMIDE [Suspect]
     Active Substance: CYCLOPHOSPHAMIDE
     Indication: Diffuse large B-cell lymphoma
     Dosage: 580 MG, UNK
     Route: 041
     Dates: start: 20180517, end: 20180517
  10. CYCLOPHOSPHAMIDE [Suspect]
     Active Substance: CYCLOPHOSPHAMIDE
     Dosage: 580 MG, UNK
     Route: 041
     Dates: start: 20180315, end: 20180315
  11. CYCLOPHOSPHAMIDE [Suspect]
     Active Substance: CYCLOPHOSPHAMIDE
     Dosage: 580 MG, UNK
     Route: 041
     Dates: start: 20180426, end: 20180426
  12. CYCLOPHOSPHAMIDE [Suspect]
     Active Substance: CYCLOPHOSPHAMIDE
     Dosage: 580 MG, (INFUSION TIME: 11:30-12:30)
     Route: 041
     Dates: start: 20180405, end: 20180405
  13. PREDNISONE [Suspect]
     Active Substance: PREDNISONE
     Indication: Diffuse large B-cell lymphoma
     Dosage: 240 MG, UNK
     Route: 048
     Dates: start: 20180426, end: 20180429
  14. PREDNISONE [Suspect]
     Active Substance: PREDNISONE
     Dosage: 300 MG
     Route: 048
     Dates: start: 20180315, end: 20180319
  15. PREDNISONE [Suspect]
     Active Substance: PREDNISONE
     Dosage: 250 MG, UNK
     Route: 048
     Dates: start: 20180517, end: 20180521
  16. PREDNISONE [Suspect]
     Active Substance: PREDNISONE
     Dosage: 300 MG, UNK
     Route: 048
     Dates: start: 20180404, end: 20180408
  17. RITUXIMAB [Suspect]
     Active Substance: RITUXIMAB
     Indication: Diffuse large B-cell lymphoma
     Dosage: 544 MG, (INFUSION TIME:15:45-21:15
     Route: 041
     Dates: start: 20180404
  18. RITUXIMAB [Suspect]
     Active Substance: RITUXIMAB
     Dosage: 544 MG, (INFUSION RATE 100 (ML/MIN) FROM 19:40-22:10
     Route: 041
     Dates: start: 20180314
  19. RITUXIMAB [Suspect]
     Active Substance: RITUXIMAB
     Dosage: 550 MG, Q3W
     Route: 042
  20. RITUXIMAB [Suspect]
     Active Substance: RITUXIMAB
     Dosage: 544 MG, UNK
     Route: 041
     Dates: start: 20180517
  21. RITUXIMAB [Suspect]
     Active Substance: RITUXIMAB
     Dosage: 550 MG, UNK
     Route: 041
     Dates: start: 20180425
  22. PEGFILGRASTIM [Concomitant]
     Active Substance: PEGFILGRASTIM
     Indication: Prophylaxis
     Dosage: UNK
     Route: 058
     Dates: start: 20180427
  23. CHOLECALCIFEROL [Concomitant]
     Active Substance: CHOLECALCIFEROL
     Indication: Prophylaxis
     Dosage: UNK
     Route: 048
     Dates: start: 20180314
  24. CAPTOPRIL HCT [Concomitant]
     Indication: Hypertension
     Dosage: UNK
     Route: 048
     Dates: start: 20100101

REACTIONS (9)
  - Subileus [Recovered/Resolved]
  - Injury [Recovered/Resolved]
  - Hypokalaemia [Recovered/Resolved]
  - Abdominal pain [Recovered/Resolved]
  - Oedema [Not Recovered/Not Resolved]
  - Accident [Recovering/Resolving]
  - Abdominal pain lower [Recovered/Resolved]
  - Fall [Recovering/Resolving]
  - Anaemia [Recovered/Resolved]

NARRATIVE: CASE EVENT DATE: 20180321
